FAERS Safety Report 7470122-X (Version None)
Quarter: 2011Q2

REPORT INFORMATION
  Report Type: 
  Country: None (occurrence: None)
  Receive Date: 20110510
  Receipt Date: 20110509
  Transmission Date: 20111010
  Serious: Yes (Hospitalization)
  Sender: FDA-Public Use
  Company Number: A0907567A

PATIENT
  Age: 49 Year
  Sex: Male

DRUGS (1)
  1. AVANDIA [Suspect]
     Dosage: 8MG PER DAY
     Route: 048
     Dates: start: 20000401, end: 20050401

REACTIONS (6)
  - CORONARY ARTERY DISEASE [None]
  - ANGINA UNSTABLE [None]
  - MYOCARDIAL INFARCTION [None]
  - AMNESIA [None]
  - BLINDNESS [None]
  - CEREBROVASCULAR ACCIDENT [None]
